FAERS Safety Report 5299846-X (Version None)
Quarter: 2007Q2

REPORT INFORMATION
  Report Type: 
  Country: None (occurrence: None)
  Receive Date: 20070417
  Receipt Date: 20070406
  Transmission Date: 20071010
  Serious: Yes (Hospitalization)
  Sender: FDA-Public Use
  Company Number: FR-PFIZER INC-2007028477

PATIENT
  Age: 47 Year
  Sex: Female

DRUGS (5)
  1. LYRICA [Suspect]
     Route: 048
  2. CYCLO 3 /FRA/ [Suspect]
     Route: 048
  3. AMITRIPTYLINE HCL [Suspect]
     Route: 048
  4. TETRAZEPAM [Suspect]
     Route: 048
  5. KETAMINE HCL [Suspect]
     Route: 030
     Dates: start: 20070226, end: 20070302

REACTIONS (1)
  - HEPATITIS [None]
